FAERS Safety Report 7038717-5 (Version None)
Quarter: 2010Q4

REPORT INFORMATION
  Report Type: 
  Country: None (occurrence: None)
  Receive Date: 20101012
  Receipt Date: 20101004
  Transmission Date: 20110411
  Serious: Yes (Hospitalization, Congenital Anomaly)
  Sender: FDA-Public Use
  Company Number: US-BIOGENIDEC-2010BI026678

PATIENT
  Age: 0 Day
  Sex: Female
  Weight: 1 kg

DRUGS (1)
  1. TYSABRI [Suspect]
     Indication: DRUG EXPOSURE DURING PREGNANCY
     Route: 064
     Dates: start: 20071217, end: 20091204

REACTIONS (3)
  - ATRIAL SEPTAL DEFECT [None]
  - FOETAL HEART RATE DECELERATION [None]
  - SMALL FOR DATES BABY [None]
